FAERS Safety Report 8050975-7 (Version None)
Quarter: 2012Q1

REPORT INFORMATION
  Report Type: 
  Country: None (occurrence: None)
  Receive Date: 20120117
  Receipt Date: 20120111
  Transmission Date: 20120608
  Serious: Yes (Hospitalization, Other)
  Sender: FDA-Public Use
  Company Number: PHEH2011US01792

PATIENT
  Sex: Female

DRUGS (15)
  1. KEPPRA [Concomitant]
     Dosage: 500 MG, BID
     Route: 048
  2. UNKNOWN NON STEROIDAL ANTI-INFLAMMATORY DRUGS [Concomitant]
  3. UNKNOWN PAIN MEDICATION [Concomitant]
  4. FOLIC ACID [Concomitant]
  5. BLOOD TRANSFUSION [Concomitant]
  6. FLEXERIL [Concomitant]
     Dosage: 10 MG, DAILY
     Route: 048
  7. UNKNOWN IV FLUIDS [Concomitant]
  8. FOLIC ACID [Concomitant]
     Route: 048
  9. KLOR-CON [Concomitant]
     Dosage: 20 MEQ, DAILY
     Route: 048
  10. LORTAB [Concomitant]
     Dosage: 10 MG, DAILY
     Route: 048
  11. EXJADE [Suspect]
     Indication: SICKLE CELL ANAEMIA
     Dosage: 1000 MG, BID
     Route: 048
     Dates: start: 20110422
  12. RED BLOOD CELLS, CONCENTRATED [Concomitant]
     Dosage: 4 U, UNK
  13. EXJADE [Suspect]
     Indication: IRON OVERLOAD
     Dosage: 500 MG, QID
     Route: 048
  14. FLUOXETINE [Concomitant]
     Dosage: 20 MG, DAILY
     Route: 048
  15. RED BLOOD CELLS [Concomitant]

REACTIONS (8)
  - BACK PAIN [None]
  - ARTHRALGIA [None]
  - SICKLE CELL ANAEMIA WITH CRISIS [None]
  - ASCITES [None]
  - HAEMANGIOMA [None]
  - SPLENIC CYST [None]
  - OEDEMA PERIPHERAL [None]
  - BURSITIS [None]
